FAERS Safety Report 6183244-0 (Version None)
Quarter: 2009Q2

REPORT INFORMATION
  Report Type: 
  Country: None (occurrence: None)
  Receive Date: 20090507
  Receipt Date: 20090504
  Transmission Date: 20091009
  Serious: Yes (Other)
  Sender: FDA-Public Use
  Company Number: US-ABBOTT-09P-163-0571252-00

PATIENT
  Sex: Male
  Weight: 52.21 kg

DRUGS (2)
  1. HUMIRA [Suspect]
     Indication: COLITIS ULCERATIVE
     Route: 058
     Dates: start: 20090101, end: 20090328
  2. HUMIRA [Suspect]
     Route: 058
     Dates: start: 20090123, end: 20090123

REACTIONS (4)
  - BONE MARROW FAILURE [None]
  - COLITIS ULCERATIVE [None]
  - CROHN'S DISEASE [None]
  - DRUG INEFFECTIVE [None]
